FAERS Safety Report 4862179-7 (Version None)
Quarter: 2005Q4

REPORT INFORMATION
  Report Type: 
  Country: None (occurrence: None)
  Receive Date: 20051221
  Receipt Date: 20051215
  Transmission Date: 20060501
  Serious: Yes (Hospitalization)
  Sender: FDA-Public Use
  Company Number: 2005CG02086

PATIENT
  Age: 34 Year
  Sex: Female

DRUGS (6)
  1. DIPRIVAN [Suspect]
     Indication: ANAESTHESIA
     Route: 042
     Dates: start: 20051012, end: 20051012
  2. ESMERON [Suspect]
     Indication: ANAESTHESIA
     Route: 042
     Dates: start: 20051012, end: 20051012
  3. SUFENTA [Suspect]
     Indication: ANAESTHESIA
     Route: 042
     Dates: start: 20051012, end: 20051012
  4. SEVORANE [Suspect]
     Indication: ANAESTHESIA
     Route: 055
     Dates: start: 20051012, end: 20051012
  5. DIANTALVIC [Suspect]
     Route: 048
     Dates: end: 20051016
  6. PERFALGAN [Suspect]

REACTIONS (3)
  - ALANINE AMINOTRANSFERASE INCREASED [None]
  - ASPARTATE AMINOTRANSFERASE INCREASED [None]
  - TRANSAMINASES INCREASED [None]
